FAERS Safety Report 5415467-X (Version None)
Quarter: 2007Q3

REPORT INFORMATION
  Report Type: 
  Country: None (occurrence: None)
  Receive Date: 20070815
  Receipt Date: 20070803
  Transmission Date: 20080115
  Serious: Yes (Death)
  Sender: FDA-Public Use
  Company Number: CH-ROCHE-510473

PATIENT
  Age: 16 Year
  Sex: Male
  Weight: 80 kg

DRUGS (1)
  1. ISOTRETINOIN [Suspect]
     Indication: ACNE
     Dosage: INDICATION: JUVENILE ACNE.
     Route: 048
     Dates: start: 19890101, end: 19900101

REACTIONS (2)
  - COMPLETED SUICIDE [None]
  - DEPRESSION [None]
